FAERS Safety Report 14319360 (Version 1)
Quarter: 2017Q4

REPORT INFORMATION
  Report Type: Spontaneous
  Country: US (occurrence: US)
  Receive Date: 20171221
  Receipt Date: 20171221
  Transmission Date: 20180321
  Serious: No
  Sender: FDA-Public Use
  Company Number: None

PATIENT
  Sex: Female

DRUGS (3)
  1. OCALIVA [Suspect]
     Active Substance: OBETICHOLIC ACID
     Indication: BILIARY CIRRHOSIS PRIMARY
     Route: 048
     Dates: start: 20171004
  2. URSODIOL. [Concomitant]
     Active Substance: URSODIOL
  3. MERCAPTOPUR [Concomitant]

REACTIONS (2)
  - Memory impairment [None]
  - Drug dose omission [None]

NARRATIVE: CASE EVENT DATE: 2017
